FAERS Safety Report 9894699 (Version 1)
Quarter: 2014Q1

REPORT INFORMATION
  Report Type: Spontaneous
  Country: US (occurrence: US)
  Receive Date: 20140213
  Receipt Date: 20140213
  Transmission Date: 20141002
  Serious: No
  Sender: FDA-Public Use
  Company Number: US-GILEAD-2014-0094216

PATIENT
  Sex: Male

DRUGS (1)
  1. SOVALDI [Suspect]
     Indication: INFECTION
     Dosage: UNK
     Route: 065
     Dates: start: 201401

REACTIONS (2)
  - Abdominal distension [Unknown]
  - Flatulence [Unknown]
